FAERS Safety Report 8395294-4 (Version None)
Quarter: 2012Q2

REPORT INFORMATION
  Report Type: 
  Country: None (occurrence: None)
  Receive Date: 20120530
  Receipt Date: 20120524
  Transmission Date: 20120825
  Serious: Yes (Hospitalization, Other)
  Sender: FDA-Public Use
  Company Number: JP-PFIZER INC-2012044088

PATIENT
  Age: 75 Year
  Sex: Male
  Weight: 48 kg

DRUGS (15)
  1. RIFABUTIN [Suspect]
     Dosage: 150 MG, 1X/DAY
     Route: 048
     Dates: start: 20090826, end: 20090908
  2. TRANSAMINE CAP [Concomitant]
     Indication: MYCOBACTERIUM AVIUM COMPLEX INFECTION
     Dosage: 250 MG, 3X/DAY
     Route: 048
  3. PASIL [Suspect]
     Indication: MYCOBACTERIUM AVIUM COMPLEX INFECTION
     Dosage: 500 MG, 1X/DAY
     Route: 041
     Dates: start: 20090709, end: 20090912
  4. CLARITHROMYCIN [Concomitant]
     Indication: MYCOBACTERIUM AVIUM COMPLEX INFECTION
     Dosage: 600 MG, 1X/DAY
     Route: 048
  5. RIFABUTIN [Suspect]
     Indication: MYCOBACTERIUM AVIUM COMPLEX INFECTION
     Dosage: 150 MG, 1X/DAY
     Route: 048
     Dates: start: 20090709, end: 20090721
  6. RIFABUTIN [Suspect]
     Dosage: 300 MG, 1X/DAY
     Route: 048
     Dates: start: 20090722, end: 20090728
  7. ADONA [Concomitant]
     Indication: MYCOBACTERIUM AVIUM COMPLEX INFECTION
     Dosage: 30 MG, 3X/DAY
     Route: 048
  8. RIFABUTIN [Suspect]
     Dosage: 150 MG, 2X/DAY
     Route: 048
     Dates: start: 20090909, end: 20100208
  9. MUCOSOLVAN [Concomitant]
     Indication: MYCOBACTERIUM AVIUM COMPLEX INFECTION
     Dosage: 15 MG, 3X/DAY
     Route: 048
  10. STREPTOMYCIN SULFATE [Suspect]
     Indication: MYCOBACTERIUM AVIUM COMPLEX INFECTION
     Dosage: 750 MG, 3X/WEEK
     Route: 030
     Dates: start: 20090708, end: 20090911
  11. LEVOFLOXACIN [Concomitant]
     Indication: MYCOBACTERIUM AVIUM COMPLEX INFECTION
     Dosage: 300 MG, 1X/DAY
     Route: 048
  12. MUCODYNE [Concomitant]
     Indication: MYCOBACTERIUM AVIUM COMPLEX INFECTION
     Dosage: 500 MG, 3X/DAY
     Route: 048
  13. MUCOSTA [Concomitant]
     Dosage: 100 MG, 3X/DAY
     Route: 048
     Dates: end: 20091108
  14. CLOBETASOL PROPIONATE [Concomitant]
     Dosage: UNK
     Route: 062
  15. LENDORMIN [Concomitant]
     Dosage: 0.25 MG, 1X/DAY
     Route: 048
     Dates: end: 20090912

REACTIONS (4)
  - DECREASED APPETITE [None]
  - PYREXIA [None]
  - DIARRHOEA [None]
  - GASTROENTERITIS [None]
